FAERS Safety Report 12530184 (Version 2)
Quarter: 2016Q3

REPORT INFORMATION
  Report Type: Spontaneous
  Country: US (occurrence: US)
  Receive Date: 20160706
  Receipt Date: 20160728
  Transmission Date: 20161109
  Serious: No
  Sender: FDA-Public Use
  Company Number: US-PFIZER INC-2016320508

PATIENT
  Age: 51 Year
  Sex: Female

DRUGS (19)
  1. TURMERIC BROMELAIN [Concomitant]
     Indication: INFLAMMATION
  2. PERCOCET [Concomitant]
     Active Substance: ACETAMINOPHEN\OXYCODONE HYDROCHLORIDE
     Indication: PAIN
     Dosage: [OXYCODONE HYDROCHLORIDE 10/ PARACETAMOL 325], EVERY 4 HOUR WHEN NECESSARY
     Route: 048
     Dates: start: 20160705
  3. LYRICA [Suspect]
     Active Substance: PREGABALIN
     Dosage: 225 MG, 2X/DAY
     Route: 048
     Dates: start: 20160615
  4. ROGAINE [Concomitant]
     Active Substance: MINOXIDIL
     Dosage: 5% TOPICAL SOLUTION 1 APPLICATION, DAILY
     Route: 061
     Dates: start: 20160312
  5. LASIX [Concomitant]
     Active Substance: FUROSEMIDE
     Indication: SWELLING
     Dosage: 40 MG, 2X/DAY
     Route: 048
     Dates: start: 20160425
  6. FINASTERIDE. [Concomitant]
     Active Substance: FINASTERIDE
     Dosage: 5 MG, DAILY
     Route: 048
     Dates: start: 20160708
  7. SYNTHROID [Concomitant]
     Active Substance: LEVOTHYROXINE SODIUM
     Dosage: 100 UG, 1X/DAY
     Route: 048
  8. MIRALAX [Concomitant]
     Active Substance: POLYETHYLENE GLYCOL 3350
     Dosage: 17 GRAM(S) MIX WITH FLUID - INTERMITTENT
     Route: 048
     Dates: start: 2016
  9. ATORVASTATIN CALCIUM. [Concomitant]
     Active Substance: ATORVASTATIN CALCIUM
     Dosage: 20 MG, 1X/DAY (AT BEDTIME)
     Route: 048
     Dates: start: 2015
  10. HYDROCHLOROTHIAZIDE-LOSARTAN [Concomitant]
     Dosage: [HYDROCHLOROTHIAZIDE 25MG-LOSARTAN 100MG], 1X/DAY
     Route: 048
     Dates: start: 2012
  11. KLOR-CON M20 [Concomitant]
     Active Substance: POTASSIUM CHLORIDE
     Dosage: 20 MEQ, 1X/DAY
     Route: 048
     Dates: start: 20160425
  12. JARDIANCE [Concomitant]
     Active Substance: EMPAGLIFLOZIN
     Dosage: UNK
     Dates: start: 20160607
  13. LYRICA [Suspect]
     Active Substance: PREGABALIN
     Indication: NEUROPATHY PERIPHERAL
     Dosage: 300 MG, 2X/DAY
     Route: 048
  14. GLIMEPIRIDE. [Concomitant]
     Active Substance: GLIMEPIRIDE
     Dosage: 8 MG, 1X/DAY
     Route: 048
     Dates: start: 2015
  15. TURMERIC BROMELAIN [Concomitant]
     Indication: PAIN
     Dosage: 1 DF, 1X/DAY
     Dates: start: 20160414
  16. TRIAMCINOLONE ACETONIDE. [Concomitant]
     Active Substance: TRIAMCINOLONE ACETONIDE
     Indication: SEBORRHOEIC DERMATITIS
     Dosage: 0.1% TOPICAL CREAM 1 APPLICATION, 2X/DAY VERY SPARINGLY
     Route: 061
  17. JARDIANCE [Concomitant]
     Active Substance: EMPAGLIFLOZIN
     Dosage: 25 MG, 1X/DAY
     Route: 048
     Dates: start: 20160612
  18. LYRICA [Suspect]
     Active Substance: PREGABALIN
     Indication: DIABETES MELLITUS
     Dosage: 225 MG, 2X/DAY
     Route: 048
     Dates: start: 20160225
  19. METFORMIN HYDROCHLORIDE. [Concomitant]
     Active Substance: METFORMIN HYDROCHLORIDE
     Dosage: 1000 MG, 2X/DAY WITH MEALS
     Route: 048
     Dates: start: 2015

REACTIONS (5)
  - Tremor [Recovering/Resolving]
  - Productive cough [Unknown]
  - Muscular weakness [Recovering/Resolving]
  - Oedema peripheral [Unknown]
  - Pain [Unknown]

NARRATIVE: CASE EVENT DATE: 20160401
